FAERS Safety Report 5057146-7 (Version None)
Quarter: 2006Q2

REPORT INFORMATION
  Report Type: 
  Country: None (occurrence: None)
  Receive Date: 20060622
  Receipt Date: 20050913
  Transmission Date: 20061013
  Serious: Yes (Other)
  Sender: FDA-Public Use
  Company Number: US-JNJFOC-20050904253

PATIENT
  Age: 49 Year
  Sex: Female
  Weight: 73.4827 kg

DRUGS (2)
  1. FENTANYL [Suspect]
     Indication: INTENTIONAL DRUG MISUSE
     Dosage: 100 UG/HR, 1 IN 72 HOUR, TRANSDERMAL
     Route: 062
     Dates: start: 20050301
  2. FENTANYL [Suspect]
     Indication: PAIN
     Dosage: 100 UG/HR, 1 IN 72 HOUR, TRANSDERMAL
     Route: 062
     Dates: start: 20050301

REACTIONS (1)
  - DRUG ABUSER [None]
